FAERS Safety Report 7882694-1 (Version None)
Quarter: 2011Q4

REPORT INFORMATION
  Report Type: 
  Country: None (occurrence: None)
  Receive Date: 20111101
  Receipt Date: 20110617
  Transmission Date: 20120403
  Serious: No
  Sender: FDA-Public Use
  Company Number: US-AMGEN-USASP2011031132

PATIENT
  Sex: Female
  Weight: 113.3 kg

DRUGS (8)
  1. METHOTREXATE [Concomitant]
     Dosage: 2.5 MG, UNK
  2. TRAZODONE HYDROCHLORIDE [Concomitant]
     Dosage: 100 MG, UNK
  3. ENBREL [Suspect]
     Indication: PRODUCT USED FOR UNKNOWN INDICATION
     Dosage: 50 MG, QWK
     Route: 058
  4. FOLIC ACID [Concomitant]
     Dosage: 1 MG, UNK
  5. MOTRIN [Concomitant]
     Dosage: 600 MG, UNK
  6. PROZAC [Concomitant]
     Dosage: 10 MG, UNK
  7. NEUROTIN                           /00949202/ [Concomitant]
     Dosage: 100 MG, UNK
  8. HYDROCHLOROTH [Concomitant]
     Dosage: 25 MG, UNK

REACTIONS (3)
  - INJECTION SITE SWELLING [None]
  - INJECTION SITE REACTION [None]
  - INJECTION SITE PRURITUS [None]
